APPROVED DRUG PRODUCT: THIOTEPA
Active Ingredient: THIOTEPA
Strength: 100MG/VIAL
Dosage Form/Route: POWDER;INTRACAVITARY, INTRAVENOUS, INTRAVESICAL
Application: A213049 | Product #002 | TE Code: AP
Applicant: MSN LABORATORIES PRIVATE LTD
Approved: Mar 4, 2020 | RLD: No | RS: No | Type: RX